FAERS Safety Report 19237628 (Version 3)
Quarter: 2021Q4

REPORT INFORMATION
  Report Type: Spontaneous
  Country: US (occurrence: US)
  Receive Date: 20210510
  Receipt Date: 20211025
  Transmission Date: 20220303
  Serious: Yes (Hospitalization)
  Sender: FDA-Public Use
  Company Number: US-CELGENE-USA-20210500091

PATIENT
  Age: 87 Year
  Sex: Female
  Weight: 72.64 kg

DRUGS (4)
  1. POMALYST [Suspect]
     Active Substance: POMALIDOMIDE
     Indication: Plasma cell myeloma
     Dosage: 2 MILLIGRAM
     Route: 048
     Dates: start: 20180901
  2. POMALYST [Suspect]
     Active Substance: POMALIDOMIDE
     Dosage: 3-2 MILLIGRAM
     Route: 048
     Dates: start: 202001
  3. POMALYST [Suspect]
     Active Substance: POMALIDOMIDE
     Dosage: 2 MILLIGRAM
     Route: 048
     Dates: start: 202009
  4. POMALYST [Suspect]
     Active Substance: POMALIDOMIDE
     Dosage: 1 MILLIGRAM
     Route: 048
     Dates: start: 202110

REACTIONS (5)
  - COVID-19 [Recovering/Resolving]
  - Dementia [Recovering/Resolving]
  - Drug hypersensitivity [Recovering/Resolving]
  - Blood glucose increased [Recovering/Resolving]
  - Plasma cell myeloma [Recovering/Resolving]

NARRATIVE: CASE EVENT DATE: 20210501
